FAERS Safety Report 20671679 (Version 1)
Quarter: 2022Q2

REPORT INFORMATION
  Report Type: Report from Study
  Country: US (occurrence: US)
  Receive Date: 20220405
  Receipt Date: 20220405
  Transmission Date: 20220721
  Serious: Yes (Other)
  Sender: FDA-Public Use
  Company Number: US-CELGENE-USA-20220104214

PATIENT
  Age: 45 Year
  Sex: Female
  Weight: 53.9 kg

DRUGS (3)
  1. REVLIMID [Suspect]
     Active Substance: LENALIDOMIDE
     Indication: Chemotherapy
     Route: 048
     Dates: start: 202112
  2. REVLIMID [Suspect]
     Active Substance: LENALIDOMIDE
     Indication: Plasma cell myeloma
     Dosage: 20 MILLIGRAM
     Route: 048
     Dates: start: 20210305
  3. REVLIMID [Suspect]
     Active Substance: LENALIDOMIDE
     Dosage: 28/BTL
     Route: 065
     Dates: start: 20210305

REACTIONS (2)
  - Upper respiratory tract infection [Unknown]
  - Sjogren^s syndrome [Unknown]
